FAERS Safety Report 17214754 (Version 1)
Quarter: 2020Q1

REPORT INFORMATION
  Report Type: Spontaneous
  Country: US (occurrence: US)
  Receive Date: 20191229
  Receipt Date: 20191229
  Transmission Date: 20200409
  Serious: No
  Sender: FDA-Public Use
  Company Number: None

PATIENT
  Age: 51 Year
  Sex: Male
  Weight: 78.75 kg

DRUGS (4)
  1. XARELTO [Suspect]
     Active Substance: RIVAROXABAN
     Indication: THROMBOSIS
     Dosage: ?          QUANTITY:1 TABLET(S);?
     Route: 048
     Dates: start: 20190731, end: 20191116
  2. IBUPROFEN. [Concomitant]
     Active Substance: IBUPROFEN
  3. VALIUM [Concomitant]
     Active Substance: DIAZEPAM
  4. OXYCODONE [Concomitant]
     Active Substance: OXYCODONE

REACTIONS (6)
  - Asthenia [None]
  - Weight decreased [None]
  - Nausea [None]
  - Fatigue [None]
  - Abdominal pain [None]
  - Bedridden [None]

NARRATIVE: CASE EVENT DATE: 20190801
